FAERS Safety Report 23780186 (Version 1)
Quarter: 2024Q2

REPORT INFORMATION
  Report Type: Report from Study
  Country: KR (occurrence: KR)
  Receive Date: 20240424
  Receipt Date: 20240424
  Transmission Date: 20240716
  Serious: Yes (Other)
  Sender: FDA-Public Use
  Company Number: KR-TAKEDA-2024TUS037355

PATIENT
  Age: 70 Year
  Sex: Male

DRUGS (1)
  1. MOBOCERTINIB [Suspect]
     Active Substance: MOBOCERTINIB
     Indication: Non-small cell lung cancer
     Dosage: 120 MILLIGRAM
     Route: 048
     Dates: start: 20240320, end: 20240401

REACTIONS (1)
  - Non-small cell lung cancer [Unknown]
